FAERS Safety Report 5156793-1 (Version None)
Quarter: 2006Q4

REPORT INFORMATION
  Report Type: 
  Country: None (occurrence: None)
  Receive Date: 20061115
  Receipt Date: 20061030
  Transmission Date: 20070319
  Serious: Yes (Other)
  Sender: FDA-Public Use
  Company Number: 2005001277

PATIENT
  Age: 8 Year
  Sex: Female
  Weight: 24.2 kg

DRUGS (2)
  1. ERLOTINIB (TABLET) (ERLOTINIB HCL) [Suspect]
     Indication: GLIOBLASTOMA
     Dosage: 75 MG (QD) ORAL
     Route: 048
     Dates: start: 20050616
  2. DEXAMETHASONE [Concomitant]

REACTIONS (2)
  - HYPOKALAEMIA [None]
  - HYPOPHOSPHATAEMIA [None]
